FAERS Safety Report 8223899-X (Version None)
Quarter: 2012Q1

REPORT INFORMATION
  Report Type: 
  Country: None (occurrence: None)
  Receive Date: 20120321
  Receipt Date: 20120316
  Transmission Date: 20120608
  Serious: Yes (Hospitalization)
  Sender: FDA-Public Use
  Company Number: DK-PFIZER INC-2012070455

PATIENT
  Age: 52 Year
  Sex: Female

DRUGS (3)
  1. SOLU-MEDROL [Suspect]
     Indication: INTESTINAL HAEMORRHAGE
     Route: 042
     Dates: start: 20090525, end: 20090527
  2. PREDNISOLONE [Suspect]
     Indication: INTESTINAL HAEMORRHAGE
     Dosage: DOSAGE: UNKNOWN
     Route: 048
     Dates: start: 20090528, end: 20090916
  3. ENALAPRIL MALEATE [Concomitant]
     Indication: HYPERTENSION
     Dates: end: 20111221

REACTIONS (5)
  - HYPERCHOLESTEROLAEMIA [None]
  - WEIGHT INCREASED [None]
  - HYPERTENSION [None]
  - HYPERGLYCAEMIA [None]
  - DEEP VEIN THROMBOSIS [None]
